FAERS Safety Report 7800567-7 (Version None)
Quarter: 2011Q4

REPORT INFORMATION
  Report Type: 
  Country: None (occurrence: None)
  Receive Date: 20111006
  Receipt Date: 20111003
  Transmission Date: 20120403
  Serious: Yes (Other)
  Sender: FDA-Public Use
  Company Number: US-AMGEN-USASP2011049443

PATIENT
  Sex: Male
  Weight: 87.71 kg

DRUGS (11)
  1. ALBUTEROL [Concomitant]
  2. MULTIVITAMIN                       /00097801/ [Concomitant]
  3. RITUXIMAB [Concomitant]
     Indication: IDIOPATHIC THROMBOCYTOPENIC PURPURA
  4. BENAZEPRIL HYDROCHLORIDE [Concomitant]
  5. IMMUNOGLOBULINS [Concomitant]
     Indication: IDIOPATHIC THROMBOCYTOPENIC PURPURA
  6. DIPHENOXYLATE [Concomitant]
  7. DULOXETIME HYDROCHLORIDE [Concomitant]
  8. OXYCODONE HCL [Concomitant]
  9. NPLATE [Suspect]
     Indication: IDIOPATHIC THROMBOCYTOPENIC PURPURA
     Dosage: 1 MUG/KG, UNK
     Dates: start: 20100511, end: 20110329
  10. IMURAN [Concomitant]
     Indication: IDIOPATHIC THROMBOCYTOPENIC PURPURA
  11. AZATHIOPRINE [Concomitant]
     Dosage: UNK

REACTIONS (5)
  - DEPRESSION [None]
  - DRUG INEFFECTIVE [None]
  - NAUSEA [None]
  - FIBROMYALGIA [None]
  - HEADACHE [None]
